FAERS Safety Report 15106103 (Version 1)
Quarter: 2018Q3

REPORT INFORMATION
  Report Type: Spontaneous
  Country: US (occurrence: US)
  Receive Date: 20180704
  Receipt Date: 20180704
  Transmission Date: 20181010
  Serious: Yes (Hospitalization, Other)
  Sender: FDA-Public Use
  Company Number: US-AUROBINDO-AUR-APL-2018-033453

PATIENT
  Age: 65 Year
  Sex: Male

DRUGS (4)
  1. ATENOLOL. [Suspect]
     Active Substance: ATENOLOL
  2. ATENOLOL. [Suspect]
     Active Substance: ATENOLOL
     Indication: HYPERTENSION
     Route: 065
  3. ACETYLSALICYLIC ACID [Concomitant]
     Active Substance: ASPIRIN
     Indication: PRODUCT USED FOR UNKNOWN INDICATION
     Route: 065
  4. AMLODIPINE [Concomitant]
     Active Substance: AMLODIPINE BESYLATE
     Indication: HYPERTENSION
     Route: 065

REACTIONS (3)
  - Extrasystoles [Recovered/Resolved]
  - Sinus node dysfunction [Recovered/Resolved]
  - Presyncope [Unknown]
